FAERS Safety Report 15139461 (Version 1)
Quarter: 2018Q3

REPORT INFORMATION
  Report Type: Spontaneous
  Country: ES (occurrence: ES)
  Receive Date: 20180713
  Receipt Date: 20180713
  Transmission Date: 20181010
  Serious: Yes (Other)
  Sender: FDA-Public Use
  Company Number: PHHY2018ES043991

PATIENT
  Age: 62 Year
  Sex: Male

DRUGS (4)
  1. QUETIAPINA [Interacting]
     Active Substance: QUETIAPINE
     Indication: DEPRESSION
     Dosage: 1200 MG, QD
     Route: 065
  2. QUETIAPINA [Suspect]
     Active Substance: QUETIAPINE
     Indication: SCHIZOPHRENIA
     Dosage: 400 MG, UNK
     Route: 065
  3. FLUTICASONE+SALMETEROL [Interacting]
     Active Substance: FLUTICASONE PROPIONATE\SALMETEROL XINAFOATE
     Indication: ASTHMA
     Dosage: UNK UNK, QD (INTERVAL 1?0?1?0?2)
     Route: 048
  4. HALOPERIDOL. [Interacting]
     Active Substance: HALOPERIDOL
     Indication: PSYCHOTIC DISORDER
     Dosage: 15 MG, QD
     Route: 065

REACTIONS (5)
  - Prescribed overdose [Unknown]
  - Drug interaction [Unknown]
  - Hypothyroidism [Unknown]
  - Pruritus [Unknown]
  - Type 2 diabetes mellitus [Unknown]
